FAERS Safety Report 15359058 (Version 3)
Quarter: 2018Q4

REPORT INFORMATION
  Report Type: Report from Study
  Country: DE (occurrence: DE)
  Receive Date: 20180906
  Receipt Date: 20181221
  Transmission Date: 20190204
  Serious: Yes (Life-Threatening, Hospitalization, Congenital Anomaly, Other)
  Sender: FDA-Public Use
  Company Number: DE-BAXTER-2018BAX022786

PATIENT
  Age: 67 Year
  Sex: Female
  Weight: 65 kg

DRUGS (30)
  1. ENDOXAN 1G [Suspect]
     Active Substance: CYCLOPHOSPHAMIDE
     Dosage: 1180 MG, UNK
     Route: 041
     Dates: start: 20180618, end: 20180618
  2. RIXIMYO [Suspect]
     Active Substance: RITUXIMAB
     Dosage: 600 MG, UNK
     Route: 041
     Dates: start: 20180618, end: 20180618
  3. DOXORUBICIN [Suspect]
     Active Substance: DOXORUBICIN
     Indication: DIFFUSE LARGE B-CELL LYMPHOMA
     Dosage: 79 MG, UNK
     Route: 041
     Dates: start: 20180709, end: 20180709
  4. DOXORUBICIN [Suspect]
     Active Substance: DOXORUBICIN
     Dosage: 79 MG, UNK
     Route: 041
     Dates: start: 20180528, end: 20180528
  5. PREDNISONE. [Suspect]
     Active Substance: PREDNISONE
     Dosage: 500 MG, UNK
     Route: 048
     Dates: start: 20180528, end: 20180601
  6. DOXORUBICIN [Suspect]
     Active Substance: DOXORUBICIN
     Dosage: 79 MG, UNK
     Route: 041
     Dates: start: 20180417, end: 20180417
  7. VINCRISTINE [Suspect]
     Active Substance: VINCRISTINE
     Indication: PRODUCT USED FOR UNKNOWN INDICATION
     Dosage: 2 MG, (INFUSION TIME 13:15)
     Route: 041
     Dates: start: 20180528, end: 20180528
  8. PREDNISONE. [Suspect]
     Active Substance: PREDNISONE
     Indication: DIFFUSE LARGE B-CELL LYMPHOMA
     Dosage: 500 MG, UNK
     Route: 048
     Dates: start: 20180709, end: 20180713
  9. PREDNISONE. [Suspect]
     Active Substance: PREDNISONE
     Dosage: 400 MG, UNK
     Route: 048
     Dates: start: 20180411, end: 20180414
  10. PREDNISONE. [Suspect]
     Active Substance: PREDNISONE
     Dosage: 350 MG, UNK
     Route: 048
     Dates: start: 20180416, end: 20180421
  11. RIXIMYO [Suspect]
     Active Substance: RITUXIMAB
     Indication: PRODUCT USED FOR UNKNOWN INDICATION
     Dosage: 600 MG, UNK
     Route: 041
     Dates: start: 20180709, end: 20180709
  12. RIXIMYO [Suspect]
     Active Substance: RITUXIMAB
     Indication: DIFFUSE LARGE B-CELL LYMPHOMA
     Dosage: 600 UNK, UNK
     Route: 041
     Dates: start: 20180528, end: 20180528
  13. RIXIMYO [Suspect]
     Active Substance: RITUXIMAB
     Dosage: 600 MG, (INFUSION RATE 250 ML/MIN FROM 10:00 TO 12:40)
     Route: 041
     Dates: start: 20180507, end: 20180507
  14. RIXIMYO [Suspect]
     Active Substance: RITUXIMAB
     Dosage: 600 MG, INFUSION TIME FROM 10:30 TO 11:30
     Route: 041
     Dates: start: 20180730
  15. VINCRISTINE [Suspect]
     Active Substance: VINCRISTINE
     Dosage: 2 MG, UNK
     Route: 041
     Dates: start: 20180709, end: 20180709
  16. ENDOXAN 1G [Suspect]
     Active Substance: CYCLOPHOSPHAMIDE
     Dosage: 1180 MG, UNK
     Route: 041
     Dates: start: 20180528, end: 20180528
  17. RIXIMYO [Suspect]
     Active Substance: RITUXIMAB
     Dosage: 600 MG, UNK
     Route: 041
     Dates: start: 20180416, end: 20180416
  18. DOXORUBICIN [Suspect]
     Active Substance: DOXORUBICIN
     Indication: PRODUCT USED FOR UNKNOWN INDICATION
     Dosage: 79 MG, UNK
     Route: 041
     Dates: start: 20180618, end: 20180618
  19. VINCRISTINE [Suspect]
     Active Substance: VINCRISTINE
     Indication: DIFFUSE LARGE B-CELL LYMPHOMA
     Dosage: 2 MG, (INFUSION TIME 12:50)
     Route: 041
     Dates: start: 20180618, end: 20180618
  20. VINCRISTINE [Suspect]
     Active Substance: VINCRISTINE
     Dosage: 2 MG, (INFUSION TIME 14:15)
     Route: 041
     Dates: start: 20180730, end: 20180730
  21. PREDNISONE. [Suspect]
     Active Substance: PREDNISONE
     Dosage: 500 MG, UNK
     Route: 048
     Dates: start: 20180507, end: 20180511
  22. ENDOXAN 1G [Suspect]
     Active Substance: CYCLOPHOSPHAMIDE
     Indication: PRODUCT USED FOR UNKNOWN INDICATION
     Dosage: 1180 MG, UNK
     Route: 041
     Dates: start: 20180730, end: 20180730
  23. ENDOXAN 1G [Suspect]
     Active Substance: CYCLOPHOSPHAMIDE
     Indication: DIFFUSE LARGE B-CELL LYMPHOMA
     Dosage: 1180 MG, (INFUSION RATE 500 ML/MIN FROM 13:10 TO 13:40)
     Route: 041
     Dates: start: 20180507, end: 20180507
  24. PREDNISONE. [Suspect]
     Active Substance: PREDNISONE
     Dosage: 500 MG, UNK
     Route: 048
     Dates: start: 20180618, end: 20180622
  25. DOXORUBICIN [Suspect]
     Active Substance: DOXORUBICIN
     Dosage: 79 MG, UNK
     Route: 041
     Dates: start: 20180730, end: 20180730
  26. ENDOXAN 1G [Suspect]
     Active Substance: CYCLOPHOSPHAMIDE
     Dosage: 1180 MG, UNK
     Route: 041
     Dates: start: 20180417, end: 20180417
  27. ENDOXAN 1G [Suspect]
     Active Substance: CYCLOPHOSPHAMIDE
     Dosage: 1180 MG, UNK
     Route: 041
     Dates: start: 20180709, end: 20180709
  28. DOXORUBICIN [Suspect]
     Active Substance: DOXORUBICIN
     Dosage: 79 MG
     Route: 041
     Dates: start: 20180507, end: 20180507
  29. VINCRISTINE [Suspect]
     Active Substance: VINCRISTINE
     Dosage: 2 MG, (INFUSION RATE 20 ML/MIN FROM 12:50 TO 13:10)
     Route: 041
     Dates: start: 20180507, end: 20180507
  30. PREDNISONE. [Suspect]
     Active Substance: PREDNISONE
     Indication: PRODUCT USED FOR UNKNOWN INDICATION
     Dosage: 500 MG, UNK
     Route: 048
     Dates: start: 20180730, end: 20180803

REACTIONS (8)
  - Diffuse large B-cell lymphoma [Not Recovered/Not Resolved]
  - Leukopenia [Not Recovered/Not Resolved]
  - Status epilepticus [Recovered/Resolved]
  - Jugular vein thrombosis [Not Recovered/Not Resolved]
  - Hypokalaemia [Not Recovered/Not Resolved]
  - Condition aggravated [Not Recovered/Not Resolved]
  - Non-Hodgkin^s lymphoma [Not Recovered/Not Resolved]
  - Abdominal pain [Not Recovered/Not Resolved]

NARRATIVE: CASE EVENT DATE: 20180601
